FAERS Safety Report 23426540 (Version 1)
Quarter: 2024Q1

REPORT INFORMATION
  Report Type: Spontaneous
  Country: CA (occurrence: CA)
  Receive Date: 20240122
  Receipt Date: 20240122
  Transmission Date: 20240410
  Serious: Yes (Hospitalization, Other)
  Sender: FDA-Public Use
  Company Number: CA-JNJFOC-20240139709

PATIENT
  Age: 75 Year
  Sex: Female

DRUGS (6)
  1. TYLENOL [Suspect]
     Active Substance: ACETAMINOPHEN
     Indication: Product used for unknown indication
     Route: 065
  2. ASPIRIN [Suspect]
     Active Substance: ASPIRIN
     Indication: Product used for unknown indication
     Route: 065
  3. CELEBREX [Suspect]
     Active Substance: CELECOXIB
     Indication: Product used for unknown indication
     Route: 065
  4. HUMIRA [Suspect]
     Active Substance: ADALIMUMAB
     Indication: Rheumatoid arthritis
     Route: 058
  5. HUMIRA [Suspect]
     Active Substance: ADALIMUMAB
     Route: 058
  6. HUMIRA [Suspect]
     Active Substance: ADALIMUMAB
     Route: 058

REACTIONS (10)
  - Anxiety [Recovering/Resolving]
  - Arthralgia [Recovering/Resolving]
  - Constipation [Recovering/Resolving]
  - Fatigue [Recovering/Resolving]
  - Influenza like illness [Recovering/Resolving]
  - Nervousness [Recovering/Resolving]
  - Osteoarthritis [Recovering/Resolving]
  - Pain of skin [Recovering/Resolving]
  - Platelet count decreased [Recovering/Resolving]
  - Urinary tract infection [Recovering/Resolving]
